FAERS Safety Report 7976575-2 (Version None)
Quarter: 2011Q4

REPORT INFORMATION
  Report Type: 
  Country: None (occurrence: None)
  Receive Date: 20111213
  Receipt Date: 20111027
  Transmission Date: 20120403
  Serious: No
  Sender: FDA-Public Use
  Company Number: US-AMGEN-USASP2011055646

PATIENT
  Sex: Female

DRUGS (6)
  1. NORVASC [Concomitant]
  2. ARAVA [Suspect]
  3. SULFASALAZINE [Concomitant]
  4. NEXIUM [Concomitant]
  5. ENBREL [Suspect]
     Indication: RHEUMATOID ARTHRITIS
     Dosage: 50 MG, QWK
  6. METHOTREXATE [Suspect]

REACTIONS (7)
  - JOINT STIFFNESS [None]
  - PAIN IN EXTREMITY [None]
  - THERAPEUTIC RESPONSE DECREASED [None]
  - JOINT SWELLING [None]
  - DIARRHOEA [None]
  - OEDEMA PERIPHERAL [None]
  - ARTHRALGIA [None]
